FAERS Safety Report 4330877-X (Version None)
Quarter: 2004Q1

REPORT INFORMATION
  Report Type: 
  Country: None (occurrence: None)
  Receive Date: 20040331
  Receipt Date: 20040312
  Transmission Date: 20041129
  Serious: Yes (Hospitalization, Other)
  Sender: FDA-Public Use
  Company Number: USA040361847

PATIENT
  Age: 60 Year
  Sex: Female

DRUGS (9)
  1. FORTEO [Suspect]
     Indication: FRACTURE
     Dates: start: 20031201
  2. FORTEO [Suspect]
     Indication: OSTEOPOROSIS
     Dates: start: 20031201
  3. DARVOCET-N 100 [Concomitant]
  4. PREDNISONE [Concomitant]
  5. LISINOPRIL [Concomitant]
  6. LORAZEPAM [Concomitant]
  7. ALBUTEROL [Concomitant]
  8. COMBIVENT [Concomitant]
  9. ZOCOR [Concomitant]

REACTIONS (9)
  - BLOOD CALCIUM INCREASED [None]
  - COLLAPSE OF LUNG [None]
  - FRACTURE [None]
  - INFLUENZA [None]
  - NAUSEA [None]
  - PHARMACEUTICAL PRODUCT COMPLAINT [None]
  - PNEUMONIA [None]
  - SPINAL FRACTURE [None]
  - VOMITING [None]
